FAERS Safety Report 23166893 (Version 2)
Quarter: 2024Q3

REPORT INFORMATION
  Report Type: Spontaneous
  Country: FR (occurrence: FR)
  Receive Date: 20231109
  Receipt Date: 20240830
  Transmission Date: 20241017
  Serious: Yes (Life-Threatening)
  Sender: RANBAXY
  Company Number: FR-EMA-DD-20230720-7182781-091848

PATIENT
  Age: 47 Year
  Sex: Female

DRUGS (5)
  1. ACETAMINOPHEN [Suspect]
     Active Substance: ACETAMINOPHEN
     Indication: Headache
     Dosage: 1 GRAM
     Route: 048
     Dates: start: 202208, end: 202208
  2. MAGNESIUM [Suspect]
     Active Substance: MAGNESIUM
     Indication: Stress
     Dosage: 1 BAG
     Route: 048
     Dates: start: 202208, end: 202208
  3. MAGNESIUM [Suspect]
     Active Substance: MAGNESIUM
     Indication: Anxiolytic therapy
  4. DIETARY SUPPLEMENT [Suspect]
     Active Substance: DIETARY SUPPLEMENT
     Indication: Anxiety
     Dosage: 1 SACHET
     Route: 048
     Dates: start: 202208, end: 202208
  5. DIETARY SUPPLEMENT [Suspect]
     Active Substance: DIETARY SUPPLEMENT
     Indication: Stress

REACTIONS (9)
  - Selective eating disorder [Not Recovered/Not Resolved]
  - Pruritus [Recovered/Resolved]
  - Erythema [Recovered/Resolved]
  - Salivary hypersecretion [Recovered/Resolved]
  - Post-traumatic stress disorder [Unknown]
  - Anaphylactic reaction [Recovered/Resolved]
  - Angioedema [Recovered/Resolved]
  - Dysphagia [Recovered/Resolved]
  - Drug hypersensitivity [Unknown]

NARRATIVE: CASE EVENT DATE: 20220801
